FAERS Safety Report 14451562 (Version 1)
Quarter: 2018Q1

REPORT INFORMATION
  Report Type: Spontaneous
  Country: US (occurrence: US)
  Receive Date: 20180129
  Receipt Date: 20180129
  Transmission Date: 20180509
  Serious: No
  Sender: FDA-Public Use
  Company Number: US-ABBVIE-17K-163-2178787-00

PATIENT
  Sex: Female

DRUGS (2)
  1. ENBREL [Suspect]
     Active Substance: ETANERCEPT
     Indication: RHEUMATOID ARTHRITIS
     Route: 065
  2. HUMIRA [Suspect]
     Active Substance: ADALIMUMAB
     Indication: RHEUMATOID ARTHRITIS
     Route: 058

REACTIONS (7)
  - Drug hypersensitivity [Unknown]
  - Injection site pain [Unknown]
  - Pruritus generalised [Recovered/Resolved]
  - Contusion [Unknown]
  - Injection site bruising [Unknown]
  - Nasopharyngitis [Recovering/Resolving]
  - Injection site discolouration [Unknown]
